FAERS Safety Report 23818441 (Version 1)
Quarter: 2024Q2

REPORT INFORMATION
  Report Type: Spontaneous
  Country: US (occurrence: US)
  Receive Date: 20240506
  Receipt Date: 20240506
  Transmission Date: 20240716
  Serious: No
  Sender: FDA-Public Use
  Company Number: US-AUROBINDO-AUR-APL-2023-058114

PATIENT
  Sex: Female

DRUGS (2)
  1. DEXTROMETHORPHAN\GUAIFENESIN [Suspect]
     Active Substance: DEXTROMETHORPHAN\GUAIFENESIN
     Indication: Secretion discharge
     Dosage: 2 DOSAGE FORM, ONCE A DAY
     Route: 065
     Dates: start: 20230902
  2. DEXTROMETHORPHAN\GUAIFENESIN [Suspect]
     Active Substance: DEXTROMETHORPHAN\GUAIFENESIN
     Indication: Cough

REACTIONS (4)
  - Dizziness [Not Recovered/Not Resolved]
  - Hypersensitivity [Not Recovered/Not Resolved]
  - Rest regimen [Not Recovered/Not Resolved]
  - Accidental overdose [Unknown]

NARRATIVE: CASE EVENT DATE: 20230903
